FAERS Safety Report 16667959 (Version 1)
Quarter: 2019Q3

REPORT INFORMATION
  Report Type: Spontaneous
  Country: IN (occurrence: IN)
  Receive Date: 20190805
  Receipt Date: 20190805
  Transmission Date: 20191004
  Serious: Yes (Other)
  Sender: FDA-Public Use
  Company Number: IN-SA-2019SA207820

PATIENT
  Sex: Male

DRUGS (1)
  1. AFLIBERCEPT [Suspect]
     Active Substance: AFLIBERCEPT
     Dosage: 0.05 ML (1.25 MG).

REACTIONS (2)
  - Endophthalmitis [Recovered/Resolved]
  - Incorrect route of product administration [Unknown]
